FAERS Safety Report 25709610 (Version 1)
Quarter: 2025Q3

REPORT INFORMATION
  Report Type: Spontaneous
  Country: US (occurrence: US)
  Receive Date: 20250821
  Receipt Date: 20250821
  Transmission Date: 20251020
  Serious: Yes (Other)
  Sender: DR REDDYS
  Company Number: US-DRL-USA-USA/2025/08/012580

PATIENT
  Age: 66 Year
  Sex: Female

DRUGS (2)
  1. BORTEZOMIB [Suspect]
     Active Substance: BORTEZOMIB
     Indication: Glomerulonephritis membranoproliferative
  2. TOLODODEKIN ALFA [Concomitant]
     Active Substance: TOLODODEKIN ALFA
     Indication: Glomerulonephritis membranoproliferative

REACTIONS (2)
  - Neuropathy peripheral [Unknown]
  - Product use in unapproved indication [Unknown]
